FAERS Safety Report 9607250 (Version 4)
Quarter: 2013Q4

REPORT INFORMATION
  Report Type: Spontaneous
  Country: US (occurrence: US)
  Receive Date: 20131009
  Receipt Date: 20131126
  Transmission Date: 20140711
  Serious: Yes (Death, Hospitalization, Other)
  Sender: FDA-Public Use
  Company Number: US-BAXTER-2013BAX038764

PATIENT
  Age: 66 Year
  Sex: Male

DRUGS (7)
  1. DIANEAL LOW CALCIUM [Suspect]
     Indication: RENAL FAILURE CHRONIC
     Route: 033
     Dates: start: 200807
  2. DIANEAL LOW CALCIUM [Suspect]
     Route: 033
     Dates: end: 20131121
  3. DIANEAL LOW CALCIUM [Suspect]
     Indication: RENAL FAILURE CHRONIC
     Route: 033
     Dates: start: 200807
  4. DIANEAL LOW CALCIUM [Suspect]
     Route: 033
     Dates: end: 20131121
  5. DIANEAL LOW CALCIUM (ULTRABAG) [Suspect]
     Indication: RENAL FAILURE CHRONIC
     Route: 033
     Dates: start: 200807
  6. DIANEAL LOW CALCIUM (ULTRABAG) [Suspect]
     Route: 033
     Dates: end: 20131121
  7. DIANEAL LOW CALCIUM (ULTRABAG) [Suspect]
     Indication: PERITONEAL DIALYSIS
     Route: 033
     Dates: end: 20131121

REACTIONS (6)
  - Death [Fatal]
  - Cardiac failure congestive [Recovering/Resolving]
  - Incision site infection [Not Recovered/Not Resolved]
  - Cough [Recovered/Resolved]
  - Asthenia [Recovering/Resolving]
  - Vomiting [Recovering/Resolving]
